FAERS Safety Report 10383030 (Version 1)
Quarter: 2014Q3

REPORT INFORMATION
  Report Type: Spontaneous
  Country: US (occurrence: US)
  Receive Date: 20140813
  Receipt Date: 20140813
  Transmission Date: 20150326
  Serious: No
  Sender: FDA-Public Use
  Company Number: US-SA-2014SA091128

PATIENT
  Age: 45 Year
  Sex: Female
  Weight: 104.3 kg

DRUGS (29)
  1. AMOXICILLIN. [Concomitant]
     Active Substance: AMOXICILLIN
  2. ACETAMINOPHEN. [Concomitant]
     Active Substance: ACETAMINOPHEN
  3. SUDAFED [Concomitant]
     Active Substance: PSEUDOEPHEDRINE HYDROCHLORIDE
  4. DEXTROMETHORPHAN/GUAIFENESIN [Concomitant]
     Active Substance: DEXTROMETHORPHAN\GUAIFENESIN
  5. TOPAMAX [Concomitant]
     Active Substance: TOPIRAMATE
  6. VITAMIN D [Concomitant]
     Active Substance: CHOLECALCIFEROL
  7. DIPHENHYDRAMINE [Concomitant]
     Active Substance: DIPHENHYDRAMINE
  8. LIDOCAINE. [Concomitant]
     Active Substance: LIDOCAINE
  9. ROXICODONE [Concomitant]
     Active Substance: OXYCODONE HYDROCHLORIDE
  10. EPINEPHRINE. [Concomitant]
     Active Substance: EPINEPHRINE
  11. FABRAZYME [Suspect]
     Active Substance: AGALSIDASE BETA
     Indication: FABRY^S DISEASE
     Dosage: EVERY 2-3 WEEKS
     Route: 042
     Dates: start: 20110210
  12. CELEBREX [Concomitant]
     Active Substance: CELECOXIB
  13. DEXLANSOPRAZOLE [Concomitant]
     Active Substance: DEXLANSOPRAZOLE
  14. DEXTROMETHORPHAN HYDROBROMIDE/GUAIFENESIN [Concomitant]
  15. SOMA [Concomitant]
     Active Substance: CARISOPRODOL
  16. MOBIC [Concomitant]
     Active Substance: MELOXICAM
  17. ASPIRIN. [Concomitant]
     Active Substance: ASPIRIN
  18. CIPRO [Concomitant]
     Active Substance: CIPROFLOXACIN HYDROCHLORIDE
  19. ALL OTHER THERAPEUTIC PRODUCTS [Concomitant]
     Active Substance: UNSPECIFIED INGREDIENT
  20. XANAX [Concomitant]
     Active Substance: ALPRAZOLAM
  21. POTASSIUM CHLORIDE. [Concomitant]
     Active Substance: POTASSIUM CHLORIDE
  22. MULTIVITAMINS [Concomitant]
     Active Substance: VITAMINS
  23. HEPARIN [Concomitant]
     Active Substance: HEPARIN SODIUM
  24. METOPROLOL [Concomitant]
     Active Substance: METOPROLOL
  25. LEXAPRO [Concomitant]
     Active Substance: ESCITALOPRAM OXALATE
  26. MORPHINE [Concomitant]
     Active Substance: MORPHINE
  27. NORMAL SALINE [Concomitant]
     Active Substance: SODIUM CHLORIDE
  28. TRILEPTAL [Concomitant]
     Active Substance: OXCARBAZEPINE
  29. PRAVASTATIN [Concomitant]
     Active Substance: PRAVASTATIN\PRAVASTATIN SODIUM

REACTIONS (7)
  - Muscular weakness [Unknown]
  - Hypotension [Unknown]
  - Limb discomfort [Unknown]
  - Headache [Unknown]
  - Burning sensation [Unknown]
  - Muscle spasms [Unknown]
  - Abdominal pain [Unknown]

NARRATIVE: CASE EVENT DATE: 20140702
